FAERS Safety Report 10888253 (Version 1)
Quarter: 2015Q1

REPORT INFORMATION
  Report Type: Spontaneous
  Country: CA (occurrence: CA)
  Receive Date: 20150304
  Receipt Date: 20150304
  Transmission Date: 20150721
  Serious: Yes (Hospitalization)
  Sender: FDA-Public Use
  Company Number: CA-MYLANLABS-2013SP005766

PATIENT

DRUGS (5)
  1. ENBREL [Suspect]
     Active Substance: ETANERCEPT
     Indication: RHEUMATOID ARTHRITIS
     Dosage: 50 MG, QW
     Route: 058
     Dates: start: 20130216, end: 2013
  2. ENBREL [Suspect]
     Active Substance: ETANERCEPT
     Dates: end: 2013
  3. CALCIUM CHLORIDE. [Concomitant]
     Active Substance: CALCIUM CHLORIDE
     Indication: PRODUCT USED FOR UNKNOWN INDICATION
  4. METHOTREXATE [Suspect]
     Active Substance: METHOTREXATE
     Indication: PRODUCT USED FOR UNKNOWN INDICATION
     Dosage: UNK
  5. ERGOCALCIFEROL. [Concomitant]
     Active Substance: ERGOCALCIFEROL
     Indication: PRODUCT USED FOR UNKNOWN INDICATION

REACTIONS (10)
  - Pneumonia [Recovered/Resolved]
  - Immunosuppression [Recovered/Resolved]
  - Blood calcium decreased [Unknown]
  - Cough [Recovered/Resolved]
  - Spinal fracture [Recovered/Resolved]
  - Hypotension [Unknown]
  - Lumbar vertebral fracture [Unknown]
  - Weight decreased [Unknown]
  - Pain [Recovering/Resolving]
  - Blood potassium decreased [Unknown]

NARRATIVE: CASE EVENT DATE: 2013
